FAERS Safety Report 6124469-X (Version None)
Quarter: 2009Q1

REPORT INFORMATION
  Report Type: 
  Country: None (occurrence: None)
  Receive Date: 20090319
  Receipt Date: 20090311
  Transmission Date: 20090719
  Serious: Yes (Other)
  Sender: FDA-Public Use
  Company Number: US-AMGEN-QUU338145

PATIENT
  Sex: Male

DRUGS (2)
  1. ENBREL [Suspect]
     Indication: PSORIASIS
     Dates: start: 20030101
  2. ENBREL [Suspect]
     Indication: PSORIATIC ARTHROPATHY

REACTIONS (8)
  - B-LYMPHOCYTE COUNT DECREASED [None]
  - CD4 LYMPHOCYTES DECREASED [None]
  - CD8 LYMPHOCYTES DECREASED [None]
  - FATIGUE [None]
  - HYPERHIDROSIS [None]
  - LYMPHOPENIA [None]
  - PYREXIA [None]
  - RASH [None]
